FAERS Safety Report 7867079-6 (Version None)
Quarter: 2011Q4

REPORT INFORMATION
  Report Type: 
  Country: None (occurrence: None)
  Receive Date: 20111028
  Receipt Date: 20111018
  Transmission Date: 20120403
  Serious: Yes (Hospitalization, Other)
  Sender: FDA-Public Use
  Company Number: US-BAYER-2011-000943

PATIENT
  Age: 45 Year
  Sex: Female
  Weight: 70.204 kg

DRUGS (18)
  1. ZYRTEC [Concomitant]
     Indication: MULTIPLE ALLERGIES
     Dosage: UNK
     Dates: start: 20040501
  2. YASMIN [Suspect]
     Indication: CONTRACEPTION
  3. YASMIN [Suspect]
     Indication: ACNE
     Dosage: UNK
     Dates: start: 20021002, end: 20070701
  4. CIPROFLOXACIN [Concomitant]
     Dosage: 500 MG, UNK
     Route: 048
     Dates: start: 20070701
  5. PREDNISONE [Concomitant]
  6. TESSALON [Concomitant]
  7. FLONASE [Concomitant]
     Dosage: 0.05 %, UNK
     Route: 045
  8. NYSTATIN [Concomitant]
     Dosage: UNK
     Dates: start: 20070705
  9. BENZONATATE COQ10 [Concomitant]
     Dosage: 10 MG, QD
     Dates: start: 20070711
  10. BENZONATATE [Concomitant]
  11. BENADRYL [Concomitant]
  12. VICODIN [Concomitant]
  13. AMERGE [Concomitant]
     Indication: MIGRAINE
     Dosage: UNK
     Dates: start: 20040101
  14. PREDNISONE [Concomitant]
     Dosage: 10 MG, UNK
     Dates: start: 20070705
  15. MULTI-VITAMIN [Concomitant]
  16. RESVERATOR [Concomitant]
     Dosage: UNK UNK, QD
  17. ASCORBIC ACID [Concomitant]
     Dosage: UNK UNK, QD
  18. FLUTICASONE PROPIONATE [Concomitant]

REACTIONS (6)
  - DEEP VEIN THROMBOSIS [None]
  - EMOTIONAL DISTRESS [None]
  - ANXIETY [None]
  - MASTECTOMY [None]
  - INJURY [None]
  - PAIN [None]
